FAERS Safety Report 7107782-9 (Version None)
Quarter: 2010Q4

REPORT INFORMATION
  Report Type: 
  Country: None (occurrence: None)
  Receive Date: 20101117
  Receipt Date: 20101103
  Transmission Date: 20110411
  Serious: Yes (Other)
  Sender: FDA-Public Use
  Company Number: PHHY2010MX31781

PATIENT
  Sex: Female

DRUGS (6)
  1. ZELMAC [Suspect]
     Indication: CONSTIPATION
     Dosage: 6 MG, QD
     Route: 048
     Dates: start: 20100401
  2. TYLEX (PARACETAMOL) [Concomitant]
  3. SYDOLIL [Concomitant]
  4. AVANDAMET [Concomitant]
  5. REPAGLINIDE [Concomitant]
  6. INSULIN [Concomitant]

REACTIONS (1)
  - EYE DISORDER [None]
